FAERS Safety Report 5734790-2 (Version None)
Quarter: 2008Q2

REPORT INFORMATION
  Report Type: 
  Country: None (occurrence: None)
  Receive Date: 20080508
  Receipt Date: 20080508
  Transmission Date: 20081010
  Serious: Yes (Disabling, Other)
  Sender: FDA-Public Use
  Company Number: None

PATIENT
  Age: 57 Year
  Sex: Female
  Weight: 70.7611 kg

DRUGS (2)
  1. ALBUTEROL [Suspect]
     Indication: CHRONIC OBSTRUCTIVE PULMONARY DISEASE
     Dosage: ONCE
     Dates: start: 20071001, end: 20071001
  2. FLOVENT [Suspect]
     Indication: EMPHYSEMA
     Dosage: ONCE
     Dates: start: 20060301, end: 20060301

REACTIONS (5)
  - ALOPECIA [None]
  - BURNING SENSATION [None]
  - DRUG HYPERSENSITIVITY [None]
  - LUNG DISORDER [None]
  - PRURITUS [None]
